FAERS Safety Report 25892516 (Version 1)
Quarter: 2025Q4

REPORT INFORMATION
  Report Type: Spontaneous
  Country: EU (occurrence: EU)
  Receive Date: 20251007
  Receipt Date: 20251007
  Transmission Date: 20260117
  Serious: Yes (Other)
  Sender: VERTEX
  Company Number: EU-VERTEX PHARMACEUTICALS-2025-007305

PATIENT
  Age: 6 Year
  Sex: Female
  Weight: 21 kg

DRUGS (7)
  1. ELEXACAFTOR\IVACAFTOR\TEZACAFTOR [Suspect]
     Active Substance: ELEXACAFTOR\IVACAFTOR\TEZACAFTOR
     Indication: Cystic fibrosis
     Dosage: 2 TABS (37.5 MG IVA/ 25 MG TEZA/ 50 MG ELEXA) IN THE AM
     Route: 048
     Dates: start: 20241015, end: 20241119
  2. ELEXACAFTOR\IVACAFTOR\TEZACAFTOR [Suspect]
     Active Substance: ELEXACAFTOR\IVACAFTOR\TEZACAFTOR
     Dosage: 1 DOSAGE FORM
     Route: 048
     Dates: start: 20241120, end: 20250131
  3. ELEXACAFTOR\IVACAFTOR\TEZACAFTOR [Suspect]
     Active Substance: ELEXACAFTOR\IVACAFTOR\TEZACAFTOR
     Dosage: RESUMPTION WITH GRADUAL INCREASE
     Route: 048
     Dates: start: 20241219, end: 2025
  4. ELEXACAFTOR\IVACAFTOR\TEZACAFTOR [Suspect]
     Active Substance: ELEXACAFTOR\IVACAFTOR\TEZACAFTOR
     Dosage: 2 TABS PER DAY
     Route: 048
     Dates: start: 20250201, end: 2025
  5. ELEXACAFTOR\IVACAFTOR\TEZACAFTOR [Suspect]
     Active Substance: ELEXACAFTOR\IVACAFTOR\TEZACAFTOR
     Dosage: 1 TAB PER DAY
     Route: 048
     Dates: start: 20250526
  6. KALYDECO [Suspect]
     Active Substance: IVACAFTOR
     Indication: Cystic fibrosis
     Dosage: 1 TAB (75 MG IVA) IN THE PM
     Route: 048
     Dates: start: 20241015, end: 20241120
  7. KALYDECO [Suspect]
     Active Substance: IVACAFTOR
     Dosage: 1 TAB (75 MG IVA) IN THE PM
     Route: 048
     Dates: start: 20250201, end: 20250428

REACTIONS (5)
  - Aggression [Not Recovered/Not Resolved]
  - Initial insomnia [Recovering/Resolving]
  - Hepatic cytolysis [Recovered/Resolved]
  - Personality change [Recovering/Resolving]
  - Depressed mood [Recovering/Resolving]

NARRATIVE: CASE EVENT DATE: 20241120
